FAERS Safety Report 7402135-8 (Version None)
Quarter: 2011Q1

REPORT INFORMATION
  Report Type: 
  Country: None (occurrence: None)
  Receive Date: 20110331
  Receipt Date: 20110324
  Transmission Date: 20110831
  Serious: Yes (Death, Hospitalization)
  Sender: FDA-Public Use
  Company Number: 2011GW000196

PATIENT
  Age: 78 Year
  Sex: Male

DRUGS (16)
  1. ACYCLOVIR [Suspect]
     Indication: GENITAL HERPES
     Dosage: 750 MG;IV
     Route: 042
  2. CEFTRIAXONE [Suspect]
     Indication: GENITAL HERPES
     Dosage: 2 GM;QD;IV
     Route: 042
  3. VINCRISTINE [Suspect]
     Indication: B-CELL UNCLASSIFIABLE LYMPHOMA LOW GRADE
  4. MITOZANTRONE (MITOXANTRONE HYDROCHLORIDE) [Suspect]
     Indication: B-CELL UNCLASSIFIABLE LYMPHOMA LOW GRADE
  5. FLUDARABINE (FLUDARABINE) [Suspect]
     Indication: B-CELL UNCLASSIFIABLE LYMPHOMA LOW GRADE
  6. CYCLOPHOSPHAMIDE [Suspect]
     Indication: B-CELL UNCLASSIFIABLE LYMPHOMA LOW GRADE
  7. ACYCLOVIR [Suspect]
     Indication: GENITAL HERPES
     Dosage: 400 MG;TID;PO ; 400 MG;PO
     Route: 048
  8. IMIQUIMOD [Suspect]
     Indication: GENITAL HERPES
     Dosage: 5 PCT;QOD;TOP
     Route: 061
  9. FOSCARNET [Suspect]
     Indication: GENITAL HERPES
     Dosage: 2.8 GM;TID;IV
     Route: 042
  10. CHLORAMBUCIL (CHLORAMBUCIL) [Suspect]
     Indication: B-CELL UNCLASSIFIABLE LYMPHOMA LOW GRADE
  11. AMOXICILLIN AND CLAVULANATE POTASSIUM [Suspect]
     Indication: GENITAL HERPES
     Dosage: 625 MG TID PO
     Route: 048
  12. RITUXIMAB (RITUXIMAB) [Suspect]
     Indication: B-CELL UNCLASSIFIABLE LYMPHOMA LOW GRADE
  13. METRONIDAZOLE [Suspect]
     Indication: GENITAL HERPES
     Dosage: 400 MG;TID;PO ; 400 MG;TID;PO
     Route: 048
  14. BACTRIM [Suspect]
     Indication: GENITAL HERPES
     Dosage: 960 MG;TID;PO
     Route: 048
  15. VALACYCLOVIR [Suspect]
     Indication: GENITAL HERPES
     Dosage: 500 MG;BID
  16. PREDNISOLONE [Suspect]
     Indication: B-CELL UNCLASSIFIABLE LYMPHOMA LOW GRADE

REACTIONS (6)
  - DIFFUSE LARGE B-CELL LYMPHOMA [None]
  - DISEASE RECURRENCE [None]
  - ANTIBIOTIC RESISTANT STAPHYLOCOCCUS TEST POSITIVE [None]
  - HERPES SIMPLEX [None]
  - ANAL ULCER [None]
  - BACTEROIDES TEST POSITIVE [None]
